FAERS Safety Report 19190325 (Version 2)
Quarter: 2024Q2

REPORT INFORMATION
  Report Type: Spontaneous
  Country: JP (occurrence: JP)
  Receive Date: 20210428
  Receipt Date: 20240411
  Transmission Date: 20240715
  Serious: Yes (Death, Life-Threatening, Hospitalization)
  Sender: FDA-Public Use
  Company Number: JP-ORPHANEU-2018000535

PATIENT

DRUGS (15)
  1. CARBAGLU [Suspect]
     Active Substance: CARGLUMIC ACID
     Indication: Methylmalonic acidaemia
     Dosage: 200 MG FIVE TIMES A DAY (77 MG/KG/DAY)
     Dates: start: 20180223, end: 20180225
  2. CARBAGLU [Suspect]
     Active Substance: CARGLUMIC ACID
     Dosage: 200-400 MG, QID (92 MG/KG/DAY)
     Dates: start: 20180226, end: 20180228
  3. RAPIACTA [Concomitant]
     Active Substance: PERAMIVIR
     Indication: Influenza
     Dosage: 100 MG, QD (INFUSION)
     Route: 041
     Dates: start: 20180219, end: 20180228
  4. LEVOCARNITINE [Concomitant]
     Active Substance: LEVOCARNITINE
     Indication: Methylmalonic acidaemia
     Dosage: 30 ML DAILY, TID (ORAL SOULTION)
     Route: 048
     Dates: start: 20180219, end: 20180228
  5. ARGININE [Concomitant]
     Active Substance: ARGININE
     Indication: Methylmalonic acidaemia
     Dosage: 1.5 G, QD
     Dates: start: 20180219, end: 20180228
  6. CARBOCYSTEINE [Concomitant]
     Active Substance: CARBOCYSTEINE
     Indication: Product used for unknown indication
     Dosage: 2709 MG, UNK
  7. PRANLUKAST HEMIHYDRATE [Concomitant]
     Active Substance: PRANLUKAST HEMIHYDRATE
     Indication: Disease complication
     Dosage: 60 MG DAILY, BID
     Route: 048
     Dates: end: 20180228
  8. BENFOTIAMINE [Concomitant]
     Active Substance: BENFOTIAMINE
     Indication: Methylmalonic acidaemia
     Dosage: 20 MG DAILY, TID
     Route: 048
     Dates: end: 20180228
  9. BIOTIN [Concomitant]
     Active Substance: BIOTIN
     Indication: Methylmalonic acidaemia
     Dosage: 1 MG DAILY, TID (POWDER)
     Route: 048
     Dates: end: 20180228
  10. CARBOCYSTEINE [Concomitant]
     Active Substance: CARBOCYSTEINE
     Indication: Disease complication
     Dosage: 270 MG DAILY, TID
     Route: 048
     Dates: end: 20180228
  11. VITAMINS [Concomitant]
     Active Substance: VITAMINS
     Indication: Methylmalonic acidaemia
     Dosage: 0.8 GRAM DAILY, TID (ORAL POWDER)
     Route: 048
     Dates: end: 20180228
  12. METHYLCOBALAMIN [Concomitant]
     Active Substance: METHYLCOBALAMIN
     Indication: Methylmalonic acidaemia
     Dosage: 1000 MILLIGRAM DAILY, BID
     Route: 048
     Dates: end: 20180228
  13. Argi u [Concomitant]
     Indication: Methylmalonic acidaemia
     Dosage: 1000 MILLIGRAM DAILY, (GRANULES)
     Route: 048
     Dates: end: 20180228
  14. Uralyt [Concomitant]
     Indication: Methylmalonic acidaemia
     Dosage: 3 TABLET (DAILY), TID
     Route: 048
     Dates: end: 20180228
  15. Mucosal [Concomitant]
     Indication: Disease complication
     Dosage: 8 MG DAILY, TID
     Route: 048
     Dates: end: 20180228

REACTIONS (2)
  - Condition aggravated [Fatal]
  - Multiple organ dysfunction syndrome [Fatal]

NARRATIVE: CASE EVENT DATE: 20180223
